FAERS Safety Report 5977723-6 (Version None)
Quarter: 2008Q4

REPORT INFORMATION
  Report Type: 
  Country: None (occurrence: None)
  Receive Date: 20081201
  Receipt Date: 20081201
  Transmission Date: 20090506
  Serious: Yes (Other)
  Sender: FDA-Public Use
  Company Number: None

PATIENT
  Age: 28 Year
  Sex: Male
  Weight: 81.6475 kg

DRUGS (2)
  1. CREST PRO-HEALTH IL -33.8 GL OZ- PROCTER + GAMBLE ORAL RINSE [Suspect]
     Indication: DENTAL PLAQUE
     Dosage: 20 ML -4 TEASPOONFULS EVERY 12 HOURS PO
     Route: 048
     Dates: start: 20081025, end: 20081125
  2. CREST PRO-HEALTH IL -33.8 GL OZ- PROCTER + GAMBLE ORAL RINSE [Suspect]
     Indication: GINGIVITIS
     Dosage: 20 ML -4 TEASPOONFULS EVERY 12 HOURS PO
     Route: 048
     Dates: start: 20081025, end: 20081125

REACTIONS (2)
  - DYSGEUSIA [None]
  - TOOTH DISCOLOURATION [None]
